FAERS Safety Report 13668034 (Version 2)
Quarter: 2017Q4

REPORT INFORMATION
  Report Type: Spontaneous
  Country: US (occurrence: US)
  Receive Date: 20170620
  Receipt Date: 20171026
  Transmission Date: 20180320
  Serious: No
  Sender: FDA-Public Use
  Company Number: US-PFIZER INC-2017265245

PATIENT
  Age: 67 Year
  Sex: Female
  Weight: 74.38 kg

DRUGS (1)
  1. SUTENT [Suspect]
     Active Substance: SUNITINIB MALATE
     Indication: HEPATIC CANCER
     Dosage: 50 MG, CYCLIC (D 1-14 Q 21 DAYS)
     Route: 048
     Dates: start: 201701

REACTIONS (4)
  - Product use in unapproved indication [Unknown]
  - Back pain [Unknown]
  - Pain [Unknown]
  - Abdominal pain [Unknown]
